FAERS Safety Report 13471416 (Version 1)
Quarter: 2017Q2

REPORT INFORMATION
  Report Type: Spontaneous
  Country: US (occurrence: US)
  Receive Date: 20170421
  Receipt Date: 20170421
  Transmission Date: 20170830
  Serious: No
  Sender: FDA-Public Use
  Company Number: None

PATIENT
  Age: 64 Year
  Sex: Male

DRUGS (1)
  1. REBIF [Suspect]
     Active Substance: INTERFERON BETA-1A

REACTIONS (4)
  - Peripheral swelling [None]
  - Multiple sclerosis relapse [None]
  - Temperature intolerance [None]
  - Joint swelling [None]

NARRATIVE: CASE EVENT DATE: 20160421
